FAERS Safety Report 14116772 (Version 1)
Quarter: 2017Q4

REPORT INFORMATION
  Report Type: Spontaneous
  Country: US (occurrence: US)
  Receive Date: 20171023
  Receipt Date: 20171023
  Transmission Date: 20180321
  Serious: No
  Sender: FDA-Public Use
  Company Number: US-009507513-1710USA001647

PATIENT

DRUGS (1)
  1. FOLLISTIM [Suspect]
     Active Substance: FOLLITROPIN
     Dosage: 600 IU, UNK
     Route: 058

REACTIONS (3)
  - No adverse event [Unknown]
  - Product quality issue [Unknown]
  - Drug dose omission [Unknown]
